FAERS Safety Report 4988402-6 (Version None)
Quarter: 2006Q2

REPORT INFORMATION
  Report Type: 
  Country: None (occurrence: None)
  Receive Date: 20060426
  Receipt Date: 20060413
  Transmission Date: 20061013
  Serious: Yes (Death)
  Sender: FDA-Public Use
  Company Number: 2006SP001489

PATIENT
  Age: 48 Year
  Sex: Male
  Weight: 105.6881 kg

DRUGS (8)
  1. XOPENEX [Suspect]
     Indication: ASTHMA
     Dosage: 1.25 MG; TID; INHALATION
     Route: 055
     Dates: start: 20060320, end: 20060329
  2. FLONASE [Concomitant]
  3. SINGULAIR [Concomitant]
  4. DUONEB [Concomitant]
  5. DOXICYCLINE [Concomitant]
  6. ADVAIR DISKUS 100/50 [Concomitant]
  7. ALBUTEROL SULFATE AUTOHALER [Concomitant]
  8. DEXAMETHASONE [Concomitant]

REACTIONS (7)
  - ASTHMA [None]
  - BRONCHITIS [None]
  - CIRCULATORY COLLAPSE [None]
  - COUGH [None]
  - DYSPNOEA [None]
  - LUNG DISORDER [None]
  - RESPIRATORY DISTRESS [None]
